FAERS Safety Report 5691412-7 (Version None)
Quarter: 2008Q2

REPORT INFORMATION
  Report Type: 
  Country: None (occurrence: None)
  Receive Date: 20080402
  Receipt Date: 20080328
  Transmission Date: 20081010
  Serious: Yes (Life-Threatening, Hospitalization)
  Sender: FDA-Public Use
  Company Number: FR-BAYER-200810854GPV

PATIENT
  Age: 31 Year
  Sex: Female

DRUGS (12)
  1. ADALAT [Suspect]
     Indication: TOCOLYSIS
     Dosage: UNIT DOSE: 20 MG
     Route: 048
     Dates: start: 20071123, end: 20071123
  2. ADALAT [Suspect]
     Dosage: UNIT DOSE: 10 MG
     Route: 048
     Dates: start: 20071122, end: 20071122
  3. LOXEN [Suspect]
     Indication: TOCOLYSIS
     Route: 042
     Dates: start: 20071123, end: 20071123
  4. LOXEN [Suspect]
     Route: 042
     Dates: start: 20071123, end: 20071124
  5. CELESTONE [Suspect]
     Indication: NEONATAL RESPIRATORY DISTRESS SYNDROME
     Dosage: UNIT DOSE: 12 MG
     Route: 030
     Dates: start: 20071122, end: 20071123
  6. TRACTOCILE [Suspect]
     Indication: TOCOLYSIS
     Route: 042
     Dates: start: 20071123, end: 20071123
  7. TRACTOCILE [Suspect]
     Route: 042
     Dates: start: 20071124, end: 20071125
  8. SUFENTANIL CITRATE [Concomitant]
     Indication: EPIDURAL ANAESTHESIA
     Route: 065
     Dates: start: 20071125, end: 20071125
  9. ROPIVACAINE [Concomitant]
     Indication: EPIDURAL ANAESTHESIA
     Route: 065
     Dates: start: 20071125, end: 20071125
  10. CATAPRES [Concomitant]
     Indication: EPIDURAL ANAESTHESIA
     Route: 065
     Dates: start: 20071125, end: 20071125
  11. PERFALGAN [Concomitant]
     Indication: BODY TEMPERATURE INCREASED
     Route: 065
     Dates: start: 20071125, end: 20071125
  12. AUGMENTIN '125' [Concomitant]
     Indication: BODY TEMPERATURE INCREASED
     Route: 065
     Dates: start: 20071125, end: 20071125

REACTIONS (8)
  - ACUTE PULMONARY OEDEMA [None]
  - DRUG EXPOSURE DURING PREGNANCY [None]
  - FLUSHING [None]
  - MYOCARDITIS [None]
  - OEDEMA PERIPHERAL [None]
  - PLEURAL EFFUSION [None]
  - RESPIRATORY DISTRESS [None]
  - STROKE VOLUME DECREASED [None]
